FAERS Safety Report 5234260-4 (Version None)
Quarter: 2007Q1

REPORT INFORMATION
  Report Type: 
  Country: None (occurrence: None)
  Receive Date: 20070207
  Receipt Date: 20070126
  Transmission Date: 20070707
  Serious: Yes (Death, Other)
  Sender: FDA-Public Use
  Company Number: MC200700060

PATIENT
  Sex: 0

DRUGS (1)
  1. ANGIOMAX [Suspect]
     Indication: CORONARY ARTERY BYPASS
     Dates: start: 20050101, end: 20050101

REACTIONS (2)
  - PULSE ABSENT [None]
  - THROMBOSIS [None]
